FAERS Safety Report 8599217-4 (Version None)
Quarter: 2012Q3

REPORT INFORMATION
  Report Type: 
  Country: None (occurrence: None)
  Receive Date: 20120816
  Receipt Date: 20110907
  Transmission Date: 20120928
  Serious: No
  Sender: FDA-Public Use
  Company Number: US-AMGEN-USASP2011032170

PATIENT
  Age: 25 Year
  Sex: Female

DRUGS (1)
  1. NEUPOGEN [Suspect]
     Indication: CYCLIC NEUTROPENIA
     Dosage: UNK
     Dates: start: 20110126, end: 20110101

REACTIONS (1)
  - NEUTROPENIA [None]
